FAERS Safety Report 6153627-3 (Version None)
Quarter: 2009Q2

REPORT INFORMATION
  Report Type: 
  Country: None (occurrence: None)
  Receive Date: 20090409
  Receipt Date: 20090403
  Transmission Date: 20091009
  Serious: Yes (Other)
  Sender: FDA-Public Use
  Company Number: 2009JP001088

PATIENT
  Age: 23 Year
  Sex: Male

DRUGS (6)
  1. PROGRAF [Suspect]
     Indication: STEM CELL TRANSPLANT
  2. METHOTREXATE [Concomitant]
  3. THIOTEPA [Concomitant]
  4. CYCLOPHOSPHAMIDE [Concomitant]
  5. STEROID [Concomitant]
  6. PREDNISOLONE [Concomitant]

REACTIONS (1)
  - THROMBOTIC MICROANGIOPATHY [None]
